FAERS Safety Report 23844361 (Version 2)
Quarter: 2024Q2

REPORT INFORMATION
  Report Type: Report from Study
  Country: US (occurrence: US)
  Receive Date: 20240510
  Receipt Date: 20240523
  Transmission Date: 20240716
  Serious: No
  Sender: FDA-Public Use
  Company Number: US-APELLIS PHARMACEUTICALS-APL-2024-004229

PATIENT

DRUGS (1)
  1. PEGCETACOPLAN [Suspect]
     Active Substance: PEGCETACOPLAN
     Indication: Paroxysmal nocturnal haemoglobinuria
     Dosage: UNK, TWICE WEEKLY
     Route: 058
     Dates: start: 20220701

REACTIONS (3)
  - Administration site discomfort [Recovered/Resolved]
  - Agitation [Recovered/Resolved]
  - Skin irritation [Unknown]
